FAERS Safety Report 22082764 (Version 1)
Quarter: 2023Q1

REPORT INFORMATION
  Report Type: Spontaneous
  Country: NL (occurrence: NL)
  Receive Date: 20230310
  Receipt Date: 20230310
  Transmission Date: 20230418
  Serious: Yes (Other)
  Sender: FDA-Public Use
  Company Number: NL-LRB-00868702

PATIENT
  Sex: Male
  Weight: 84 kg

DRUGS (1)
  1. ESCITALOPRAM [Suspect]
     Active Substance: ESCITALOPRAM OXALATE
     Indication: Depression
     Dosage: 10 MILLIGRAM, ONCE A DAY(1 X PER DAG 1 STUK)
     Route: 065
     Dates: start: 20230205

REACTIONS (3)
  - Suicidal ideation [Not Recovered/Not Resolved]
  - Erectile dysfunction [Not Recovered/Not Resolved]
  - Insomnia [Not Recovered/Not Resolved]
